FAERS Safety Report 12441749 (Version 1)
Quarter: 2016Q2

REPORT INFORMATION
  Report Type: Spontaneous
  Country: US (occurrence: None)
  Receive Date: 20160606
  Receipt Date: 20160606
  Transmission Date: 20160815
  Serious: Yes (Hospitalization)
  Sender: FDA-Public Use
  Company Number: None

PATIENT
  Age: 7 Year
  Sex: Male
  Weight: 22.6 kg

DRUGS (1)
  1. ERWINIA ASPARAGINASE [Suspect]
     Active Substance: ASPARAGINASE ERWINIA CHRYSANTHEMI
     Dates: end: 20160527

REACTIONS (7)
  - Stomatitis [None]
  - Asthenia [None]
  - Erythema [None]
  - Pyrexia [None]
  - Diarrhoea [None]
  - Neutropenia [None]
  - Proctalgia [None]

NARRATIVE: CASE EVENT DATE: 20160531
